FAERS Safety Report 16596328 (Version 1)
Quarter: 2019Q3

REPORT INFORMATION
  Report Type: Spontaneous
  Country: US (occurrence: US)
  Receive Date: 20190719
  Receipt Date: 20190719
  Transmission Date: 20191004
  Serious: No
  Sender: FDA-Public Use
  Company Number: US-SUN PHARMACEUTICAL INDUSTRIES LTD-2019R1-214348

PATIENT
  Sex: Female

DRUGS (3)
  1. ABSORICA [Suspect]
     Active Substance: ISOTRETINOIN
     Indication: PRODUCT USED FOR UNKNOWN INDICATION
     Dosage: 40 MILLIGRAM, QD (1 ST MONTH)
     Route: 065
     Dates: start: 201808, end: 201903
  2. ABSORICA [Suspect]
     Active Substance: ISOTRETINOIN
     Dosage: 40 MILLIGRAM, TID (THIRD MONTH)
     Route: 065
     Dates: start: 201808, end: 201903
  3. ABSORICA [Suspect]
     Active Substance: ISOTRETINOIN
     Dosage: 40 MILLIGRAM, DAILY  (2ND MONTH)
     Route: 065
     Dates: start: 201808, end: 201903

REACTIONS (3)
  - Off label use [Unknown]
  - Arthralgia [Unknown]
  - Dry skin [Unknown]
